FAERS Safety Report 15848286 (Version 1)
Quarter: 2019Q1

REPORT INFORMATION
  Report Type: Spontaneous
  Country: US (occurrence: US)
  Receive Date: 20190121
  Receipt Date: 20190121
  Transmission Date: 20190417
  Serious: No
  Sender: FDA-Public Use
  Company Number: US-009507513-1901USA001244

PATIENT
  Age: 46 Year
  Sex: Female
  Weight: 122.9 kg

DRUGS (5)
  1. SIMVASTATIN. [Concomitant]
     Active Substance: SIMVASTATIN
     Dosage: ONCE DAILY
  2. BACLOFEN. [Concomitant]
     Active Substance: BACLOFEN
     Dosage: 3 TIMES DAILY
  3. LAMICTAL [Concomitant]
     Active Substance: LAMOTRIGINE
     Dosage: ^TWICE^
  4. LEXAPRO [Concomitant]
     Active Substance: ESCITALOPRAM OXALATE
     Dosage: ONCE DAILY
  5. NEXPLANON [Suspect]
     Active Substance: ETONOGESTREL
     Indication: CONTRACEPTION
     Dosage: 3 YEAR IMPLANT
     Route: 059
     Dates: start: 20160405

REACTIONS (3)
  - Menstrual disorder [Not Recovered/Not Resolved]
  - Amenorrhoea [Recovered/Resolved]
  - Oligomenorrhoea [Not Recovered/Not Resolved]

NARRATIVE: CASE EVENT DATE: 20160405
